FAERS Safety Report 17153661 (Version 3)
Quarter: 2020Q2

REPORT INFORMATION
  Report Type: Report from Study
  Country: CH (occurrence: CH)
  Receive Date: 20191213
  Receipt Date: 20200403
  Transmission Date: 20200713
  Serious: Yes (Other)
  Sender: FDA-Public Use
  Company Number: CH-BAYER-2019-224697

PATIENT
  Age: 36 Year
  Sex: Female

DRUGS (1)
  1. JAYDESS [Suspect]
     Active Substance: LEVONORGESTREL
     Indication: CONTRACEPTION
     Dosage: 14 MCG/24HR, CONT
     Route: 015
     Dates: start: 20190920, end: 20191202

REACTIONS (6)
  - Polymenorrhagia [None]
  - Dysphoria [None]
  - Urinary tract infection [None]
  - Vaginal infection [None]
  - Vaginal discharge [None]
  - Device intolerance [None]

NARRATIVE: CASE EVENT DATE: 2019
